FAERS Safety Report 9723323 (Version 1)
Quarter: 2013Q4

REPORT INFORMATION
  Report Type: Spontaneous
  Country: US (occurrence: US)
  Receive Date: 20131202
  Receipt Date: 20131202
  Transmission Date: 20140711
  Serious: No
  Sender: FDA-Public Use
  Company Number: US-GLAXOSMITHKLINE-A1002914A

PATIENT
  Age: 60 Year
  Sex: Female

DRUGS (3)
  1. FLUTICASONE PROPIONATE [Suspect]
     Indication: ASTHMA
     Dates: start: 2006
  2. VERAMYST [Suspect]
     Indication: ASTHMA
     Dosage: 2PUFF TWICE PER DAY
     Route: 045
     Dates: start: 2007
  3. ALLERCLEAR [Concomitant]

REACTIONS (6)
  - Drug ineffective [Recovered/Resolved]
  - Headache [Unknown]
  - Epistaxis [Unknown]
  - Oropharyngeal pain [Unknown]
  - Myalgia [Unknown]
  - Cough [Unknown]
